FAERS Safety Report 4511071-6 (Version None)
Quarter: 2004Q4

REPORT INFORMATION
  Report Type: 
  Country: None (occurrence: None)
  Receive Date: 20041015
  Receipt Date: 20040305
  Transmission Date: 20050328
  Serious: Yes (Other)
  Sender: FDA-Public Use
  Company Number: 2004015524

PATIENT
  Age: 20 Year
  Sex: Male
  Weight: 70.3075 kg

DRUGS (4)
  1. NEURONTIN [Suspect]
     Indication: BIPOLAR DISORDER
     Dosage: 600 MG (DAILY)
     Dates: start: 20030101
  2. QUETIAPINE FUMARATE (QUETIAPINE FUMARATE) [Concomitant]
  3. PAROXETINE HCL [Concomitant]
  4. VALPROATE SODIUM [Concomitant]

REACTIONS (5)
  - BLOOD MAGNESIUM DECREASED [None]
  - BLOOD POTASSIUM DECREASED [None]
  - INTENTIONAL OVERDOSE [None]
  - MEDICATION ERROR [None]
  - SUICIDE ATTEMPT [None]
